FAERS Safety Report 14962245 (Version 1)
Quarter: 2018Q2

REPORT INFORMATION
  Report Type: Spontaneous
  Country: US (occurrence: US)
  Receive Date: 20180510
  Receipt Date: 20180510
  Transmission Date: 20180711
  Serious: Yes (Disabling)
  Sender: FDA-Public Use
  Company Number: None

PATIENT
  Age: 48 Year
  Sex: Male
  Weight: 85.5 kg

DRUGS (6)
  1. MOXIFLOXACIN. [Suspect]
     Active Substance: MOXIFLOXACIN
     Indication: EYE OPERATION
     Dosage: ?          QUANTITY:1 INJECTION(S);OTHER FREQUENCY:POST SURGERY;?
     Route: 047
     Dates: start: 20170523, end: 20170523
  2. ATENOLOL. [Concomitant]
     Active Substance: ATENOLOL
  3. OMEPRAZOLE. [Concomitant]
     Active Substance: OMEPRAZOLE
  4. ATORVASTATIN [Concomitant]
     Active Substance: ATORVASTATIN
  5. ENALAPRIL [Concomitant]
     Active Substance: ENALAPRIL
  6. ASPIRIN. [Concomitant]
     Active Substance: ASPIRIN

REACTIONS (3)
  - Photophobia [None]
  - Vitreous floaters [None]
  - Pigmentary glaucoma [None]

NARRATIVE: CASE EVENT DATE: 20170523
